FAERS Safety Report 6375790-1 (Version None)
Quarter: 2009Q3

REPORT INFORMATION
  Report Type: 
  Country: None (occurrence: None)
  Receive Date: 20090922
  Receipt Date: 20090922
  Transmission Date: 20100115
  Serious: No
  Sender: FDA-Public Use
  Company Number: None

PATIENT
  Age: 42 Year
  Sex: Female

DRUGS (1)
  1. ICY HOT MEDICATED NO-MESS APPLICATOR [Suspect]
     Dates: start: 20090830, end: 20090901

REACTIONS (3)
  - APPLICATION SITE BURN [None]
  - SKIN DISCOLOURATION [None]
  - SKIN EXFOLIATION [None]
